FAERS Safety Report 6735871-7 (Version None)
Quarter: 2010Q2

REPORT INFORMATION
  Report Type: 
  Country: None (occurrence: None)
  Receive Date: 20100521
  Receipt Date: 20100514
  Transmission Date: 20101027
  Serious: Yes (Death, Life-Threatening, Hospitalization)
  Sender: FDA-Public Use
  Company Number: A0859778A

PATIENT
  Age: 57 Year
  Sex: Male

DRUGS (1)
  1. TYKERB [Suspect]
     Dosage: 1250MG PER DAY
     Route: 048
     Dates: start: 20100330

REACTIONS (2)
  - ADVERSE EVENT [None]
  - DISEASE PROGRESSION [None]
